FAERS Safety Report 25768449 (Version 1)
Quarter: 2025Q3

REPORT INFORMATION
  Report Type: Report from Study
  Country: BR (occurrence: BR)
  Receive Date: 20250905
  Receipt Date: 20250905
  Transmission Date: 20251020
  Serious: Yes (Other)
  Sender: ROCHE
  Company Number: BR-ROCHE-10000375029

PATIENT

DRUGS (8)
  1. ATEZOLIZUMAB [Suspect]
     Active Substance: ATEZOLIZUMAB
     Indication: Hepatocellular carcinoma
     Route: 042
  2. BEVACIZUMAB [Suspect]
     Active Substance: BEVACIZUMAB
     Indication: Hepatocellular carcinoma
     Route: 042
  3. TREMELIMUMAB [Suspect]
     Active Substance: TREMELIMUMAB
     Indication: Hepatocellular carcinoma
     Route: 042
  4. DURVALUMAB [Suspect]
     Active Substance: DURVALUMAB
     Indication: Hepatocellular carcinoma
     Route: 042
  5. NIVOLUMAB [Suspect]
     Active Substance: NIVOLUMAB
     Indication: Hepatocellular carcinoma
     Route: 042
  6. NELVUTAMIG [Suspect]
     Active Substance: NELVUTAMIG
     Indication: Hepatocellular carcinoma
     Route: 042
  7. NELVUTAMIG [Suspect]
     Active Substance: NELVUTAMIG
     Route: 042
  8. PEMBROLIZUMAB [Suspect]
     Active Substance: PEMBROLIZUMAB
     Indication: Hepatocellular carcinoma
     Route: 042

REACTIONS (14)
  - Colitis [Unknown]
  - Pneumonitis [Unknown]
  - Type 1 diabetes mellitus [Unknown]
  - Arthritis [Unknown]
  - Hepatitis [Unknown]
  - Fatigue [Unknown]
  - Thyroid disorder [Unknown]
  - Bleeding varicose vein [Unknown]
  - Haemorrhage [Unknown]
  - Proteinuria [Unknown]
  - Hypertension [Unknown]
  - Deep vein thrombosis [Unknown]
  - Thrombocytopenia [Unknown]
  - Angina unstable [Unknown]
